FAERS Safety Report 8141522-X (Version None)
Quarter: 2012Q1

REPORT INFORMATION
  Report Type: 
  Country: None (occurrence: None)
  Receive Date: 20120216
  Receipt Date: 20120201
  Transmission Date: 20120608
  Serious: Yes (Other)
  Sender: FDA-Public Use
  Company Number: DE-ROCHE-1036140

PATIENT
  Sex: Female

DRUGS (3)
  1. AVASTIN [Suspect]
     Indication: BREAST CANCER
  2. ANTHRACYCLINE [Concomitant]
  3. TAXANE NOS [Concomitant]

REACTIONS (3)
  - METASTASES TO LYMPH NODES [None]
  - LYMPHOEDEMA [None]
  - TUMOUR ULCERATION [None]
